FAERS Safety Report 6648048-0 (Version None)
Quarter: 2010Q1

REPORT INFORMATION
  Report Type: 
  Country: None (occurrence: None)
  Receive Date: 20100324
  Receipt Date: 20100315
  Transmission Date: 20100710
  Serious: Yes (Other)
  Sender: FDA-Public Use
  Company Number: PHHY2010GB13337

PATIENT
  Sex: Female

DRUGS (1)
  1. ESTRADERM [Suspect]

REACTIONS (5)
  - ERYTHEMA [None]
  - HYPERSENSITIVITY [None]
  - SKIN IRRITATION [None]
  - SKIN REACTION [None]
  - SKIN ULCER [None]
